FAERS Safety Report 24602948 (Version 2)
Quarter: 2024Q4

REPORT INFORMATION
  Report Type: Spontaneous
  Country: RO (occurrence: RO)
  Receive Date: 20241111
  Receipt Date: 20241125
  Transmission Date: 20250114
  Serious: Yes (Death, Hospitalization)
  Sender: TEVA
  Company Number: RO-TEVA-VS-3262022

PATIENT
  Age: 66 Year
  Sex: Male

DRUGS (2)
  1. METHOTREXATE [Suspect]
     Active Substance: METHOTREXATE
     Indication: Rheumatoid arthritis
     Route: 058
  2. METHOTREXATE [Suspect]
     Active Substance: METHOTREXATE
     Indication: Rheumatoid arthritis
     Route: 058

REACTIONS (5)
  - Interstitial lung disease [Fatal]
  - Cardio-respiratory arrest [Fatal]
  - Pulmonary embolism [Fatal]
  - Respiratory failure [Fatal]
  - Bradycardia [Fatal]
